FAERS Safety Report 9737028 (Version 1)
Quarter: 2013Q4

REPORT INFORMATION
  Report Type: Spontaneous
  Country: US (occurrence: US)
  Receive Date: 20131206
  Receipt Date: 20131206
  Transmission Date: 20140711
  Serious: No
  Sender: FDA-Public Use
  Company Number: US-GILEAD-2009-0024265

PATIENT
  Sex: Male
  Weight: 100.24 kg

DRUGS (18)
  1. LETAIRIS [Suspect]
     Indication: PULMONARY ARTERIAL HYPERTENSION
     Dates: start: 20081126
  2. VENTAVIS [Concomitant]
     Indication: PULMONARY ARTERIAL HYPERTENSION
  3. REVATIO [Concomitant]
     Indication: PULMONARY ARTERIAL HYPERTENSION
  4. VENTOLIN INHALER [Concomitant]
  5. ADVAIR [Concomitant]
  6. LASIX [Concomitant]
  7. OXYGEN [Concomitant]
  8. MIRTAZAPINE [Concomitant]
  9. BENTYL [Concomitant]
  10. NEURONTIN [Concomitant]
  11. CLONAZEPAM [Concomitant]
  12. METFORMIN [Concomitant]
  13. PRAVASTATIN [Concomitant]
  14. TOPROL XL [Concomitant]
  15. ACIPHEX [Concomitant]
  16. PLAVIX [Concomitant]
  17. LANTUS INSULIN [Concomitant]
  18. NOVOLOG [Concomitant]

REACTIONS (1)
  - Diarrhoea [Unknown]
